FAERS Safety Report 9981651 (Version 2)
Quarter: 2014Q1

REPORT INFORMATION
  Report Type: Report from Study
  Country: PR (occurrence: PR)
  Receive Date: 20140307
  Receipt Date: 20140307
  Transmission Date: 20141002
  Serious: Yes (Hospitalization)
  Sender: FDA-Public Use
  Company Number: PR-ABBVIE-13P-131-1174562-00

PATIENT
  Sex: Female
  Weight: 67.65 kg

DRUGS (11)
  1. HUMIRA [Suspect]
     Indication: RHEUMATOID ARTHRITIS
     Route: 058
     Dates: end: 20131202
  2. UNKNOWN MEDICATION [Concomitant]
     Indication: HYPERTENSION
     Route: 048
  3. HUMULIN [Concomitant]
     Indication: DIABETES MELLITUS
     Route: 058
  4. HUMULIN [Concomitant]
     Indication: DIABETES MELLITUS
     Route: 058
  5. ZANTAC [Concomitant]
     Indication: GASTRITIS
     Route: 048
  6. METHOTREXATE [Concomitant]
     Indication: RHEUMATOID ARTHRITIS
     Route: 048
  7. SULINDAC [Concomitant]
     Indication: PAIN
     Route: 048
  8. FOLIC ACID [Concomitant]
     Indication: RHEUMATOID ARTHRITIS
     Route: 048
  9. SULFA [Concomitant]
     Indication: PRODUCT USED FOR UNKNOWN INDICATION
     Route: 048
  10. B12 [Concomitant]
     Indication: VITAMIN SUPPLEMENTATION
  11. UNKNOWN MEDICATION [Concomitant]
     Indication: BLOOD CHOLESTEROL
     Route: 048

REACTIONS (1)
  - Pneumonia [Recovering/Resolving]
